FAERS Safety Report 5812539-2 (Version None)
Quarter: 2008Q3

REPORT INFORMATION
  Report Type: 
  Country: None (occurrence: None)
  Receive Date: 20080714
  Receipt Date: 20080714
  Transmission Date: 20090109
  Serious: Yes (Life-Threatening)
  Sender: FDA-Public Use
  Company Number: None

PATIENT
  Age: 52 Year
  Sex: Female

DRUGS (1)
  1. EPTIFIBATIDE [Suspect]
     Indication: MYOCARDIAL INFARCTION
     Dosage: 180MCG/KG Q10MINN TWICE IV, 2MCG/KG/MIN CONTINUOUS IV DRIP
     Route: 042
     Dates: start: 20080520, end: 20080522

REACTIONS (1)
  - TROPONIN INCREASED [None]
